FAERS Safety Report 8863473 (Version 1)
Quarter: 2012Q4

REPORT INFORMATION
  Report Type: 
  Country: US (occurrence: US)
  Receive Date: 20121024
  Receipt Date: 20121024
  Transmission Date: 20130627
  Serious: No
  Sender: FDA-Public Use
  Company Number: US-AMGEN-USASP2011062601

PATIENT
  Age: 67 Year
  Sex: Female
  Weight: 72.11 kg

DRUGS (2)
  1. ENBREL [Suspect]
     Indication: RHEUMATOID ARTHRITIS
     Dosage: 50 mg, qwk
     Dates: start: 2009
  2. ANTIHYPERTENSIVES [Concomitant]

REACTIONS (2)
  - Weight decreased [Not Recovered/Not Resolved]
  - Contusion [Not Recovered/Not Resolved]
